FAERS Safety Report 9555267 (Version 1)
Quarter: 2013Q3

REPORT INFORMATION
  Report Type: Spontaneous
  Country: US (occurrence: None)
  Receive Date: 20130830
  Receipt Date: 20130830
  Transmission Date: 20140515
  Serious: Yes (Other)
  Sender: FDA-Public Use
  Company Number: KV201300140

PATIENT
  Age: 0 Day
  Sex: 0

DRUGS (4)
  1. MAKENA [Suspect]
     Indication: MATERNAL EXPOSURE DURING PREGNANCY
     Dates: start: 20130307, end: 20130405
  2. PRENATAL VITAMINS /01543901/ (ASCORBIC ACID, BIOTIN, MINERALS NOS, NICOTINIC ACID, RETINOL, TOCEPHEROL, VITAMIN B NOS, VITAMIN D NOS) [Concomitant]
  3. COLACE [Concomitant]
  4. IRON (IRON) [Concomitant]

REACTIONS (1)
  - Premature baby [None]
